FAERS Safety Report 7556485-5 (Version None)
Quarter: 2011Q2

REPORT INFORMATION
  Report Type: 
  Country: None (occurrence: None)
  Receive Date: 20110620
  Receipt Date: 20110607
  Transmission Date: 20111010
  Serious: Yes (Hospitalization)
  Sender: FDA-Public Use
  Company Number: JP-JNJFOC-20110606713

PATIENT
  Sex: Male

DRUGS (15)
  1. SELBEX [Suspect]
     Indication: GASTRITIS
     Route: 048
  2. ALPRAZOLAM [Suspect]
     Indication: INSOMNIA
     Route: 048
  3. TRAMADOL HCL [Suspect]
     Indication: PAIN
     Route: 048
     Dates: start: 20110526
  4. TRAMADOL HCL [Suspect]
     Route: 048
     Dates: start: 20110421, end: 20110505
  5. VOLTAREN [Suspect]
     Indication: PAIN
     Route: 048
  6. LYRICA [Suspect]
     Indication: PAIN
     Route: 048
     Dates: start: 20110331
  7. ZOLPIDEM [Suspect]
     Indication: INSOMNIA
     Route: 048
  8. ALINAMIN F [Suspect]
     Indication: VITAMIN SUPPLEMENTATION
     Route: 048
  9. GASMOTIN [Suspect]
     Indication: GASTRITIS
     Route: 048
  10. PRORENAL [Suspect]
     Indication: PAIN
     Route: 048
  11. LIPITOR [Suspect]
     Indication: DYSLIPIDAEMIA
     Route: 048
  12. MAGNESIUM SULFATE [Suspect]
     Indication: CONSTIPATION
     Route: 048
     Dates: start: 20110512
  13. TRAMADOL HCL [Suspect]
     Route: 048
     Dates: start: 20110519, end: 20110525
  14. ASPIRIN [Suspect]
     Indication: THROMBOSIS PROPHYLAXIS
     Route: 048
  15. TRAMADOL HCL [Suspect]
     Route: 048
     Dates: start: 20110506, end: 20110518

REACTIONS (1)
  - PNEUMONIA [None]
